FAERS Safety Report 8273886-0 (Version None)
Quarter: 2012Q2

REPORT INFORMATION
  Report Type: 
  Country: None (occurrence: None)
  Receive Date: 20120409
  Receipt Date: 20120328
  Transmission Date: 20120825
  Serious: Yes (Other)
  Sender: FDA-Public Use
  Company Number: 2012-001286

PATIENT
  Age: 45 Year
  Sex: Male

DRUGS (6)
  1. XYZAL (LEVOCETIRIZINE HYDROCHLORIDE) [Concomitant]
  2. MUCINEX [Concomitant]
  3. HYDROCORTISONE [Concomitant]
  4. SUDAFED 12 HOUR [Concomitant]
  5. ACTONEL [Suspect]
     Indication: OSTEOPENIA
     Dosage: 150 MG ONCE MONTHLY, ORAL; 35 MG,,ORAL
     Route: 048
     Dates: start: 20100101, end: 20110101
  6. ACTONEL [Suspect]
     Indication: OSTEOPENIA
     Dosage: 150 MG ONCE MONTHLY, ORAL; 35 MG,,ORAL
     Route: 048
     Dates: start: 20000101, end: 20100101

REACTIONS (5)
  - ARTHRITIS INFECTIVE [None]
  - IRRITABLE BOWEL SYNDROME [None]
  - BONE LOSS [None]
  - ARTHROPATHY [None]
  - MEDICAL DEVICE COMPLICATION [None]
